FAERS Safety Report 9171720 (Version 2)
Quarter: 2013Q1

REPORT INFORMATION
  Report Type: Spontaneous
  Country: DK (occurrence: None)
  Receive Date: 20130301
  Receipt Date: 20130320
  Transmission Date: 20140127
  Serious: Yes (Other)
  Sender: FDA-Public Use
  Company Number: GAM-042-13-DK

PATIENT
  Age: 34 Year
  Sex: Female

DRUGS (4)
  1. OCTAGAM [Suspect]
     Indication: IMMUNODEFICIENCY COMMON VARIABLE
     Dosage: INTRAVENOUS (NOT OTHERWISE SPECIFIED)
     Route: 042
     Dates: start: 2003, end: 2010
  2. HUMAN IMMUNOGLOBULIN G [Suspect]
     Indication: IMMUNODEFICIENCY COMMON VARIABLE
     Dosage: INTRAVENOUS (NOT OTHERWISE SPECIFIED)
     Route: 042
     Dates: start: 2001, end: 2002
  3. GAMMANORM [Suspect]
     Indication: IMMUNODEFICIENCY COMMON VARIABLE
     Route: 058
     Dates: start: 2001, end: 2004
  4. HUMAN IMMUNOGLOBULIN G [Suspect]
     Indication: IMMUNODEFICIENCY COMMON VARIABLE
     Dosage: INTRAVENOUS (NOT OTHERWISE SPECIFIED)
     Route: 042
     Dates: start: 20080620, end: 20080620

REACTIONS (4)
  - Hepatic cirrhosis [None]
  - Transmission of an infectious agent via product [None]
  - Chronic hepatitis C [None]
  - Exposure during pregnancy [None]
